FAERS Safety Report 11809534 (Version 1)
Quarter: 2015Q4

REPORT INFORMATION
  Report Type: Spontaneous
  Country: DE (occurrence: DE)
  Receive Date: 20151208
  Receipt Date: 20151208
  Transmission Date: 20160305
  Serious: Yes (Hospitalization)
  Sender: FDA-Public Use
  Company Number: DE-SUN PHARMACEUTICAL INDUSTRIES LTD-2015RR-107184

PATIENT

DRUGS (27)
  1. LORAZEPAM. [Suspect]
     Active Substance: LORAZEPAM
     Dosage: 0.5 MG, DAILY
     Route: 048
     Dates: start: 20140913, end: 20140916
  2. LORAZEPAM. [Suspect]
     Active Substance: LORAZEPAM
     Dosage: 3 MG, DAILY
     Route: 048
     Dates: start: 20140927, end: 20141005
  3. VENLAFAXINE [Suspect]
     Active Substance: VENLAFAXINE HYDROCHLORIDE
     Dosage: 225 MG, DAILY
     Route: 048
     Dates: start: 20140827, end: 20140924
  4. VENLAFAXINE [Suspect]
     Active Substance: VENLAFAXINE HYDROCHLORIDE
     Dosage: 75 MG, DAILY
     Route: 048
     Dates: start: 20141014, end: 20141015
  5. VENLAFAXINE [Suspect]
     Active Substance: VENLAFAXINE HYDROCHLORIDE
     Dosage: 37.5 MG, DAILY
     Route: 048
     Dates: start: 20141016, end: 20141020
  6. OLANZAPINE. [Suspect]
     Active Substance: OLANZAPINE
     Dosage: 5 MG, DAILY
     Route: 048
     Dates: start: 20140924, end: 20141004
  7. MIRTAZAPIN [Suspect]
     Active Substance: MIRTAZAPINE
     Indication: PRODUCT USED FOR UNKNOWN INDICATION
     Dosage: 30 MG, DAILY
     Route: 048
     Dates: start: 20140711, end: 20140722
  8. OLANZAPINE. [Suspect]
     Active Substance: OLANZAPINE
     Dosage: 10 MG, DAILY
     Route: 048
     Dates: start: 20140921, end: 20140923
  9. RAMIPRIL. [Concomitant]
     Active Substance: RAMIPRIL
     Indication: PRODUCT USED FOR UNKNOWN INDICATION
     Dosage: 10 MG, DAILY
     Route: 048
  10. VENLAFAXINE [Suspect]
     Active Substance: VENLAFAXINE HYDROCHLORIDE
     Dosage: 150 MG, DAILY
     Route: 048
     Dates: start: 20140925, end: 20141013
  11. PROPOFOL. [Suspect]
     Active Substance: PROPOFOL
     Indication: PRODUCT USED FOR UNKNOWN INDICATION
     Dosage: 100 MG, UNK
     Route: 042
     Dates: start: 20140911
  12. ALLOPURINOL. [Concomitant]
     Active Substance: ALLOPURINOL
     Indication: PRODUCT USED FOR UNKNOWN INDICATION
     Dosage: 300 MG, DAILY
     Route: 048
     Dates: end: 20141027
  13. SIMVASTATIN. [Concomitant]
     Active Substance: SIMVASTATIN
     Indication: PRODUCT USED FOR UNKNOWN INDICATION
     Dosage: 40 MG, DAILY
     Route: 048
     Dates: end: 20141020
  14. FOLSAEURE [Concomitant]
     Active Substance: FOLIC ACID
     Indication: PRODUCT USED FOR UNKNOWN INDICATION
     Dosage: 10 MG, DAILY
     Route: 048
     Dates: start: 20140819, end: 20141028
  15. LORAZEPAM. [Suspect]
     Active Substance: LORAZEPAM
     Dosage: 2 MG, DAILY
     Route: 048
     Dates: start: 20141006, end: 20141008
  16. KALINOR [Concomitant]
     Active Substance: POTASSIUM CITRATE
     Indication: PRODUCT USED FOR UNKNOWN INDICATION
     Dosage: 1800 MG, DAILY
     Route: 048
     Dates: start: 20140809
  17. LORAZEPAM. [Suspect]
     Active Substance: LORAZEPAM
     Dosage: 1 MG, DAILY
     Route: 048
     Dates: start: 20140729, end: 20140912
  18. AMLODIPIN [Concomitant]
     Active Substance: AMLODIPINE BESYLATE
     Indication: PRODUCT USED FOR UNKNOWN INDICATION
     Dosage: 10 MG, DAILY, FOR MONTHS
     Route: 048
  19. MIRTAZAPIN [Suspect]
     Active Substance: MIRTAZAPINE
     Dosage: 45 MG, UNK
     Route: 048
     Dates: start: 20140723, end: 20140924
  20. OLANZAPINE. [Suspect]
     Active Substance: OLANZAPINE
     Dosage: 15 MG, DAILY
     Route: 048
     Dates: start: 20140819, end: 20140920
  21. LORAZEPAM. [Suspect]
     Active Substance: LORAZEPAM
     Indication: PRODUCT USED FOR UNKNOWN INDICATION
     Dosage: 2 MG, DAILY
     Route: 048
     Dates: start: 20140627, end: 20140728
  22. LORAZEPAM. [Suspect]
     Active Substance: LORAZEPAM
     Dosage: 1 MG, DAILY
     Route: 048
     Dates: start: 20140923, end: 20140925
  23. VENLAFAXINE [Suspect]
     Active Substance: VENLAFAXINE HYDROCHLORIDE
     Indication: PRODUCT USED FOR UNKNOWN INDICATION
     Dosage: 150 MG, DAILY
     Route: 048
     Dates: start: 20140808, end: 20150826
  24. OLANZAPINE. [Suspect]
     Active Substance: OLANZAPINE
     Indication: PRODUCT USED FOR UNKNOWN INDICATION
     Dosage: 10 MG, DAILY
     Route: 048
  25. LORAZEPAM. [Suspect]
     Active Substance: LORAZEPAM
     Dosage: 1.5 MG, DAILY
     Route: 048
     Dates: start: 20140926
  26. LORAZEPAM. [Suspect]
     Active Substance: LORAZEPAM
     Dosage: 1.5 MG, DAILY
     Route: 048
     Dates: start: 20141009, end: 20141022
  27. BIFITERAL [Concomitant]
     Active Substance: LACTULOSE
     Indication: PRODUCT USED FOR UNKNOWN INDICATION
     Dosage: 15 ML, DAILY
     Route: 048
     Dates: start: 20140724

REACTIONS (5)
  - Delirium [Recovered/Resolved]
  - Urinary incontinence [None]
  - Faecal incontinence [None]
  - Cerebral ischaemia [None]
  - Cerebral arteriosclerosis [None]

NARRATIVE: CASE EVENT DATE: 20140911
